FAERS Safety Report 5793556-8 (Version None)
Quarter: 2008Q2

REPORT INFORMATION
  Report Type: 
  Country: None (occurrence: None)
  Receive Date: 20080627
  Receipt Date: 20080620
  Transmission Date: 20081010
  Serious: Yes (Other)
  Sender: FDA-Public Use
  Company Number: US-JNJFOC-20080605558

PATIENT
  Age: 67 Year
  Sex: Female
  Weight: 58.97 kg

DRUGS (1)
  1. TYLENOL (CAPLET) [Suspect]
     Indication: INSOMNIA
     Dosage: AT NIGHT
     Route: 048

REACTIONS (1)
  - ANGLE CLOSURE GLAUCOMA [None]
